FAERS Safety Report 21893342 (Version 3)
Quarter: 2023Q2

REPORT INFORMATION
  Report Type: Spontaneous
  Country: FR (occurrence: FR)
  Receive Date: 20230121
  Receipt Date: 20230427
  Transmission Date: 20230721
  Serious: Yes (Life-Threatening, Hospitalization, Other)
  Sender: FDA-Public Use
  Company Number: FR-Accord-296543

PATIENT
  Age: 81 Year
  Sex: Female
  Weight: 67 kg

DRUGS (10)
  1. SIMVASTATIN [Interacting]
     Active Substance: SIMVASTATIN
     Indication: Dyslipidaemia
  2. EZETIMIBE [Interacting]
     Active Substance: EZETIMIBE
     Indication: Dyslipidaemia
     Dates: end: 20211229
  3. PALBOCICLIB [Interacting]
     Active Substance: PALBOCICLIB
     Indication: Breast cancer metastatic
     Dosage: 21 DAYS/28
     Dates: start: 20211204, end: 2022
  4. FENUGREEK LEAF\HERBALS [Interacting]
     Active Substance: FENUGREEK LEAF\HERBALS
     Indication: Decreased appetite
     Dates: start: 20211222, end: 20211224
  5. VENLAFAXINE [Concomitant]
     Active Substance: VENLAFAXINE HYDROCHLORIDE
  6. ALLOPURINOL [Concomitant]
     Active Substance: ALLOPURINOL
  7. APIXABAN [Concomitant]
     Active Substance: APIXABAN
  8. LEVOTHYROXINE [Concomitant]
     Active Substance: LEVOTHYROXINE
  9. LETROZOLE [Concomitant]
     Active Substance: LETROZOLE
     Indication: Hormone receptor positive HER2 negative breast cancer
     Dates: start: 20211204
  10. EZETIMIBE [Interacting]
     Active Substance: EZETIMIBE
     Indication: Hypercholesterolaemia
     Dosage: 1CP/J
     Dates: start: 20020101, end: 20211229

REACTIONS (7)
  - Necrotising myositis [Recovered/Resolved]
  - Herbal interaction [Unknown]
  - Drug interaction [Unknown]
  - Dropped head syndrome [Recovered/Resolved]
  - Self-medication [Unknown]
  - Condition aggravated [Recovered/Resolved]
  - Rhabdomyolysis [Recovered/Resolved]

NARRATIVE: CASE EVENT DATE: 20211204
